FAERS Safety Report 4673983-2 (Version None)
Quarter: 2005Q2

REPORT INFORMATION
  Report Type: 
  Country: None (occurrence: None)
  Receive Date: 20050525
  Receipt Date: 20050519
  Transmission Date: 20051028
  Serious: Yes (Hospitalization)
  Sender: FDA-Public Use
  Company Number: 2005JP000983

PATIENT
  Age: 11 Year
  Sex: Male

DRUGS (8)
  1. TACROLIMUS [Suspect]
     Indication: RENAL TRANSPLANT
     Dates: start: 19981213, end: 20000301
  2. PREDNISOLONE [Concomitant]
  3. MIZORIBINE [Concomitant]
  4. SELBEX (TEPRENONE) [Concomitant]
  5. URINORM (BENZBROMARONE) [Concomitant]
  6. GLYCYRON (AMINOACETIC ACID, DL-METHIONINE, GLYCYRRHIZIC ACID) [Concomitant]
  7. LAC B (LACTOBACILLUS BIFIDUS, LYOPHILIZED) [Concomitant]
  8. CLARITHROMYCIN [Concomitant]

REACTIONS (2)
  - EPSTEIN-BARR VIRUS INFECTION [None]
  - PERSISTENT GENERALISED LYMPHADENOPATHY [None]
